FAERS Safety Report 4821606-1 (Version None)
Quarter: 2005Q4

REPORT INFORMATION
  Report Type: 
  Country: None (occurrence: None)
  Receive Date: 20051103
  Receipt Date: 20051103
  Transmission Date: 20060501
  Serious: Yes (Life-Threatening, Hospitalization)
  Sender: FDA-Public Use
  Company Number: None

PATIENT
  Age: 63 Year
  Sex: Female
  Weight: 83.9154 kg

DRUGS (5)
  1. LOVENOX [Suspect]
     Indication: ATRIAL FIBRILLATION
     Dosage: 85 MG SC DAILY
     Route: 058
     Dates: start: 20050715, end: 20050717
  2. ASPIRIN [Suspect]
     Indication: CORONARY ARTERY DISEASE
     Dosage: 325 MG DAILY
     Dates: start: 20050716, end: 20050719
  3. DILTIAZEM HCL [Concomitant]
  4. ENALAPRIL [Concomitant]
  5. NITROGLYCERIN [Concomitant]

REACTIONS (3)
  - HAEMATEMESIS [None]
  - HYPOTENSION [None]
  - UPPER GASTROINTESTINAL HAEMORRHAGE [None]
